FAERS Safety Report 5152258-1 (Version None)
Quarter: 2006Q4

REPORT INFORMATION
  Report Type: 
  Country: None (occurrence: None)
  Receive Date: 20061113
  Receipt Date: 20061113
  Transmission Date: 20070319
  Serious: Yes (Hospitalization)
  Sender: FDA-Public Use
  Company Number: None

PATIENT
  Sex: Male
  Weight: 48.5349 kg

DRUGS (1)
  1. CLINDAMYCIN [Suspect]
     Indication: STAPHYLOCOCCAL OSTEOMYELITIS
     Dosage: 500MG Q8H IV
     Route: 042
     Dates: start: 20061016, end: 20061030

REACTIONS (2)
  - RASH [None]
  - URTICARIA [None]
